FAERS Safety Report 9532243 (Version 1)
Quarter: 2013Q3

REPORT INFORMATION
  Report Type: Spontaneous
  Country: BR (occurrence: BR)
  Receive Date: 20130918
  Receipt Date: 20130918
  Transmission Date: 20140515
  Serious: Yes (Other)
  Sender: FDA-Public Use
  Company Number: BR-BAYER-2013-112252

PATIENT
  Age: 27 Year
  Sex: Female
  Weight: 51 kg

DRUGS (2)
  1. QLAIRA [Suspect]
     Indication: CONTRACEPTION
     Dosage: 1 DF, QD
     Route: 048
     Dates: start: 20130827
  2. OMEPRAZOLE [Concomitant]
     Indication: GASTRITIS
     Dosage: 1 DF, QD
     Route: 048
     Dates: start: 201306

REACTIONS (1)
  - Candida infection [Recovered/Resolved]
